FAERS Safety Report 23027693 (Version 1)
Quarter: 2023Q4

REPORT INFORMATION
  Report Type: Spontaneous
  Country: GB (occurrence: GB)
  Receive Date: 20231004
  Receipt Date: 20231004
  Transmission Date: 20240110
  Serious: Yes (Hospitalization, Other)
  Sender: FDA-Public Use
  Company Number: GB-PFIZER INC-PV202300159952

PATIENT
  Age: 63 Year
  Sex: Female

DRUGS (2)
  1. GENOTROPIN [Suspect]
     Active Substance: SOMATROPIN
     Dosage: WEEKDAYS
  2. GENOTROPIN [Suspect]
     Active Substance: SOMATROPIN
     Dosage: WEEKENDS

REACTIONS (1)
  - Sciatica [Unknown]
